FAERS Safety Report 20576715 (Version 2)
Quarter: 2022Q2

REPORT INFORMATION
  Report Type: Spontaneous
  Country: JP (occurrence: JP)
  Receive Date: 20220310
  Receipt Date: 20220411
  Transmission Date: 20220720
  Serious: Yes (Hospitalization, Other)
  Sender: FDA-Public Use
  Company Number: JP-BRISTOL-MYERS SQUIBB COMPANY-BMS-2021-144208

PATIENT
  Sex: Female
  Weight: 54.9 kg

DRUGS (40)
  1. ORENCIA [Suspect]
     Active Substance: ABATACEPT
     Indication: Juvenile idiopathic arthritis
     Route: 041
     Dates: start: 20190225, end: 20211220
  2. ORENCIA [Suspect]
     Active Substance: ABATACEPT
     Route: 041
     Dates: start: 20190325
  3. ORENCIA [Suspect]
     Active Substance: ABATACEPT
     Route: 041
     Dates: start: 20190426
  4. ORENCIA [Suspect]
     Active Substance: ABATACEPT
     Route: 041
     Dates: start: 20190524
  5. ORENCIA [Suspect]
     Active Substance: ABATACEPT
     Route: 041
     Dates: start: 20190628
  6. ORENCIA [Suspect]
     Active Substance: ABATACEPT
     Route: 041
     Dates: start: 20190705
  7. ORENCIA [Suspect]
     Active Substance: ABATACEPT
     Route: 041
     Dates: start: 20190805
  8. ORENCIA [Suspect]
     Active Substance: ABATACEPT
     Route: 041
     Dates: start: 20190902
  9. ORENCIA [Suspect]
     Active Substance: ABATACEPT
     Route: 041
     Dates: start: 20191021
  10. ORENCIA [Suspect]
     Active Substance: ABATACEPT
     Route: 041
     Dates: start: 20191202
  11. ORENCIA [Suspect]
     Active Substance: ABATACEPT
     Route: 041
     Dates: start: 20200117
  12. ORENCIA [Suspect]
     Active Substance: ABATACEPT
     Route: 041
     Dates: start: 20200221
  13. ORENCIA [Suspect]
     Active Substance: ABATACEPT
     Route: 041
     Dates: start: 20200601
  14. ORENCIA [Suspect]
     Active Substance: ABATACEPT
     Route: 041
     Dates: start: 20200727
  15. ORENCIA [Suspect]
     Active Substance: ABATACEPT
     Route: 041
     Dates: start: 20200831
  16. ORENCIA [Suspect]
     Active Substance: ABATACEPT
     Route: 041
     Dates: start: 20201005
  17. ORENCIA [Suspect]
     Active Substance: ABATACEPT
     Route: 041
     Dates: start: 20201102
  18. ORENCIA [Suspect]
     Active Substance: ABATACEPT
     Route: 041
     Dates: start: 20201130
  19. ORENCIA [Suspect]
     Active Substance: ABATACEPT
     Route: 041
     Dates: start: 20210109
  20. ORENCIA [Suspect]
     Active Substance: ABATACEPT
     Route: 041
     Dates: start: 20210209
  21. ORENCIA [Suspect]
     Active Substance: ABATACEPT
     Route: 041
     Dates: start: 20210308
  22. ORENCIA [Suspect]
     Active Substance: ABATACEPT
     Route: 041
     Dates: start: 20210405
  23. ORENCIA [Suspect]
     Active Substance: ABATACEPT
     Route: 041
     Dates: start: 20210510
  24. ORENCIA [Suspect]
     Active Substance: ABATACEPT
     Route: 041
     Dates: start: 20210614
  25. ORENCIA [Suspect]
     Active Substance: ABATACEPT
     Route: 041
     Dates: start: 20210719
  26. ORENCIA [Suspect]
     Active Substance: ABATACEPT
     Route: 041
     Dates: start: 20210823
  27. ORENCIA [Suspect]
     Active Substance: ABATACEPT
     Route: 041
     Dates: start: 20210928
  28. ORENCIA [Suspect]
     Active Substance: ABATACEPT
     Route: 041
     Dates: start: 20211108
  29. METHOTREXATE [Concomitant]
     Active Substance: METHOTREXATE
     Indication: Product used for unknown indication
     Dosage: 10 MICROGRAM-2MILLIGRAM/WK
     Route: 065
     Dates: start: 20100603, end: 20211213
  30. BUCILLAMINE [Concomitant]
     Active Substance: BUCILLAMINE
     Indication: Juvenile idiopathic arthritis
     Dosage: 100 MILLIGRAM, ONE TIME DOSE
     Route: 048
     Dates: start: 20130603
  31. PROGRAF [Concomitant]
     Active Substance: TACROLIMUS
     Indication: Juvenile idiopathic arthritis
     Dosage: 1 MILLIGRAM, ONE TIME DOSE
     Route: 048
     Dates: start: 20140929
  32. PREDNISOLONE ACETATE [Concomitant]
     Active Substance: PREDNISOLONE ACETATE
     Indication: Juvenile idiopathic arthritis
     Dosage: 1-2MG, 1-2 TIMES
     Route: 048
     Dates: start: 20130729
  33. PREDNISOLONE ACETATE [Concomitant]
     Active Substance: PREDNISOLONE ACETATE
     Indication: Thyroiditis chronic
  34. DIPYRIDAMOLE [Concomitant]
     Active Substance: DIPYRIDAMOLE
     Indication: Product used for unknown indication
     Dosage: 25 MILLIGRAM, BID
     Route: 048
     Dates: start: 20170220
  35. FOLIAMIN NICHIYAKU [Concomitant]
     Indication: Juvenile idiopathic arthritis
     Dosage: 5 MILLIGRAM,1/WK
     Route: 048
     Dates: start: 20130603
  36. FOLIAMIN NICHIYAKU [Concomitant]
     Indication: Thyroiditis chronic
  37. RHEUMATREX [Concomitant]
     Active Substance: METHOTREXATE SODIUM
     Indication: Juvenile idiopathic arthritis
     Dosage: 2-10MG, 1-2/WK
     Route: 048
     Dates: start: 20130603, end: 20211220
  38. THEO-DUR [Concomitant]
     Active Substance: THEOPHYLLINE ANHYDROUS
     Indication: Product used for unknown indication
     Dosage: 100 MILLIGRAM, BID
     Route: 048
     Dates: start: 20200313
  39. REBAMIPIDE [Concomitant]
     Active Substance: REBAMIPIDE
     Indication: Prophylaxis
     Dosage: 100 MILLIGRAM,1-2 TIMES
     Route: 048
     Dates: start: 20101018
  40. CARBOCYSTEINE [Concomitant]
     Active Substance: CARBOCYSTEINE
     Indication: Product used for unknown indication
     Dosage: 250 MILLIGRAM, BID
     Route: 048
     Dates: start: 20210106

REACTIONS (5)
  - Asthma [Recovering/Resolving]
  - Bronchitis [Recovering/Resolving]
  - Eosinophil count increased [Unknown]
  - Hyperglobulinaemia [Unknown]
  - Otitis media acute [Recovered/Resolved]

NARRATIVE: CASE EVENT DATE: 20190901
